FAERS Safety Report 8062210 (Version 5)
Quarter: 2012Q4

REPORT INFORMATION
  Report Type: Report from Study
  Country: SE (occurrence: SE)
  Receive Date: 20110801
  Receipt Date: 20120830
  Transmission Date: 20130627
  Serious: Yes (Hospitalization, Other)
  Sender: FDA-Public Use
  Company Number: SE-CELGENEUS-150-21880-11071577

PATIENT
  Age: 60 Year
  Sex: Female
  Weight: 92 kg

DRUGS (9)
  1. REVLIMID [Suspect]
     Indication: MULTIPLE MYELOMA
     Dosage: 25 Milligram
     Route: 048
  2. REVLIMID [Suspect]
     Dosage: 10 Milligram
     Route: 048
     Dates: start: 20100722
  3. REVLIMID [Suspect]
     Dosage: 10 Milligram
     Route: 048
     Dates: start: 20110510
  4. REVLIMID [Suspect]
     Dosage: 10 Milligram
     Route: 048
     Dates: start: 20110615, end: 20110705
  5. REVLIMID [Suspect]
     Dosage: 10 Milligram
     Route: 048
     Dates: start: 20110718, end: 20110727
  6. DEXAMETHASONE [Suspect]
     Indication: MULTIPLE MYELOMA
     Route: 048
  7. DEXAMETHASONE [Suspect]
     Route: 048
     Dates: start: 20100412, end: 20110705
  8. DEXAMETHASONE [Suspect]
     Route: 048
     Dates: start: 20110718, end: 20110727
  9. INNOHEP [Concomitant]
     Indication: PROPHYLAXIS
     Dosage: 4500 IU (International Unit)
     Route: 058
     Dates: start: 20110417

REACTIONS (7)
  - Adenocarcinoma of colon [Recovered/Resolved]
  - Stem cell transplant [None]
  - No therapeutic response [None]
  - Blood albumin decreased [None]
  - Platelet count decreased [None]
  - Anaemia [None]
  - Pulmonary embolism [None]
